FAERS Safety Report 6392408-2 (Version None)
Quarter: 2009Q4

REPORT INFORMATION
  Report Type: 
  Country: None (occurrence: None)
  Receive Date: 20091007
  Receipt Date: 20090924
  Transmission Date: 20100525
  Serious: Yes (Hospitalization, Other)
  Sender: FDA-Public Use
  Company Number: AU-PFIZER INC-2009273840

PATIENT

DRUGS (2)
  1. XALATAN [Suspect]
  2. ALPHAGAN [Suspect]

REACTIONS (3)
  - ABDOMINAL PAIN [None]
  - HEREDITARY ANGIOEDEMA [None]
  - VOMITING [None]
